FAERS Safety Report 11067833 (Version 1)
Quarter: 2015Q2

REPORT INFORMATION
  Report Type: Report from Study
  Country: US (occurrence: US)
  Receive Date: 20150427
  Receipt Date: 20150427
  Transmission Date: 20150821
  Serious: Yes (Other)
  Sender: FDA-Public Use
  Company Number: US-ROCHE-1566712

PATIENT

DRUGS (1)
  1. RITUXIMAB [Suspect]
     Active Substance: RITUXIMAB
     Indication: ENDOCRINE OPHTHALMOPATHY
     Dosage: AT BASELINE AND 2 WEEKS LATER, PRECEDED BY ACETAMINOPHEN AND 100 MG OF METHYLPREDNISOLONE 1 HR BEFOR
     Route: 042

REACTIONS (1)
  - Endocrine ophthalmopathy [Recovered/Resolved]
